FAERS Safety Report 7963377-6 (Version None)
Quarter: 2011Q4

REPORT INFORMATION
  Report Type: 
  Country: None (occurrence: None)
  Receive Date: 20111205
  Receipt Date: 20111125
  Transmission Date: 20120403
  Serious: No
  Sender: FDA-Public Use
  Company Number: 2011HGS-002776

PATIENT
  Age: 34 Year
  Sex: Female
  Weight: 74.8435 kg

DRUGS (12)
  1. TYLENOL (PARACETAMOL) (PARACETAMOL) [Concomitant]
  2. ASPIRIN [Concomitant]
  3. BENLYSTA [Suspect]
     Indication: SYSTEMIC LUPUS ERYTHEMATOSUS
     Dosage: 10 MG/KG, 1 IN 4 WK, INTRAVENOUS DRIP
     Route: 041
     Dates: start: 20110627, end: 20111019
  4. BENLYSTA [Suspect]
  5. BENLYSTA [Suspect]
  6. BENLYSTA [Suspect]
  7. PHENEGRAN (PROMETHAZINE HYDROCHLORIDE) (PROMETHAZINE HYDROCHLORIDE) [Concomitant]
  8. HYDROCODONE (HYDROCODONE) HYDROCODONE) [Concomitant]
  9. BENLYSTA [Suspect]
  10. FENTANYL [Concomitant]
  11. XANAX [Concomitant]
  12. SEROQUEL (QUETIAPINE FUMARATE) (QUETIAPINE FUMARATE) [Concomitant]

REACTIONS (11)
  - MYALGIA [None]
  - MALAISE [None]
  - HYPOPHAGIA [None]
  - DRUG INEFFECTIVE [None]
  - BONE PAIN [None]
  - COUGH [None]
  - NAUSEA [None]
  - OVARIAN CYST [None]
  - HEADACHE [None]
  - FATIGUE [None]
  - PROCEDURAL PAIN [None]
